FAERS Safety Report 8891162 (Version 1)
Quarter: 2012Q4

REPORT INFORMATION
  Report Type: 
  Country: US (occurrence: US)
  Receive Date: 20121107
  Receipt Date: 20121107
  Transmission Date: 20130627
  Serious: Yes (Death, Other)
  Sender: FDA-Public Use
  Company Number: US-EISAI INC-E3810-06023-SOL-US

PATIENT
  Age: 82 Year
  Sex: Female

DRUGS (1)
  1. ACIPHEX (RABEPRAZOLE) [Suspect]
     Indication: DRUG USE FOR UNKNOWN INDICATION
     Route: 048

REACTIONS (2)
  - Death [Fatal]
  - Cerebrovascular accident [Fatal]
